FAERS Safety Report 19842176 (Version 1)
Quarter: 2021Q3

REPORT INFORMATION
  Report Type: Spontaneous
  Country: DE (occurrence: DE)
  Receive Date: 20210916
  Receipt Date: 20210916
  Transmission Date: 20211014
  Serious: Yes (Life-Threatening, Hospitalization, Other)
  Sender: FDA-Public Use
  Company Number: DE-MYLANLABS-2021M1062357

PATIENT
  Age: 60 Year
  Sex: Female

DRUGS (5)
  1. ETOPOSIDE. [Suspect]
     Active Substance: ETOPOSIDE
     Indication: PRODUCT USED FOR UNKNOWN INDICATION
     Dosage: UNK (SECHSTER ZYKLUS AM 0202201)
  2. CARBOPLATIN. [Suspect]
     Active Substance: CARBOPLATIN
     Indication: PRODUCT USED FOR UNKNOWN INDICATION
     Dosage: (SECHSTER ZYKLUS AM 0202201)
  3. APIXABAN [Concomitant]
     Active Substance: APIXABAN
     Dosage: 5 MILLIGRAM (1?0?1?0)
  4. TELMISARTAN. [Concomitant]
     Active Substance: TELMISARTAN
     Dosage: 40 MILLIGRAM (1?0?0?0)
  5. PREDNISOLONE. [Suspect]
     Active Substance: PREDNISOLONE
     Indication: PRODUCT USED FOR UNKNOWN INDICATION
     Dosage: 150 MILLIGRAM, AM (AM 02022021)

REACTIONS (5)
  - Tachycardia [Unknown]
  - Tachypnoea [Unknown]
  - Hypertension [Unknown]
  - Hyperglycaemia [Unknown]
  - Dyspnoea [Unknown]
